FAERS Safety Report 8957771 (Version 1)
Quarter: 2012Q4

REPORT INFORMATION
  Report Type: 
  Country: CN (occurrence: CN)
  Receive Date: 20121211
  Receipt Date: 20121211
  Transmission Date: 20130627
  Serious: Yes (Death, Hospitalization, Other)
  Sender: FDA-Public Use
  Company Number: CN-BAYER-2012-128206

PATIENT
  Age: 40 Year
  Sex: Male

DRUGS (3)
  1. NEXAVAR [Suspect]
     Indication: CARCINOMA HEPATOCELLULAR
     Dosage: 400 mg, QD
     Route: 048
     Dates: start: 20121010, end: 20121010
  2. NEXAVAR [Suspect]
     Indication: CARCINOMA HEPATOCELLULAR
     Dosage: 400 mg, QD
     Route: 048
     Dates: start: 20121012, end: 20121016
  3. NEXAVAR [Suspect]
     Indication: CARCINOMA HEPATOCELLULAR
     Dosage: 200 mg, QD
     Route: 048
     Dates: start: 20121017, end: 20121017

REACTIONS (12)
  - Gastrointestinal oedema [None]
  - Upper gastrointestinal haemorrhage [Fatal]
  - Haematemesis [Fatal]
  - Melaena [None]
  - Haematochezia [None]
  - Vomiting [None]
  - Abdominal pain [None]
  - Diarrhoea [None]
  - General physical health deterioration [None]
  - Hypophagia [None]
  - Dysphagia [None]
  - Abdominal pain upper [None]
